FAERS Safety Report 14246169 (Version 2)
Quarter: 2017Q4

REPORT INFORMATION
  Report Type: Report from Study
  Country: None (occurrence: AR)
  Receive Date: 20171204
  Receipt Date: 20171225
  Transmission Date: 20180321
  Serious: Yes (Other)
  Sender: FDA-Public Use
  Company Number: AR-ABBVIE-17K-007-2181870-00

PATIENT
  Age: 70 Year
  Sex: Male

DRUGS (2)
  1. ARTRAIT [Concomitant]
     Active Substance: METHOTREXATE SODIUM
     Indication: PRODUCT USED FOR UNKNOWN INDICATION
  2. HUMIRA [Suspect]
     Active Substance: ADALIMUMAB
     Indication: PSORIATIC ARTHROPATHY
     Route: 058
     Dates: start: 20151029, end: 201703

REACTIONS (2)
  - Cholelithiasis [Recovering/Resolving]
  - Gallbladder cholesterolosis [Recovering/Resolving]

NARRATIVE: CASE EVENT DATE: 20171015
